FAERS Safety Report 7436069-X (Version None)
Quarter: 2011Q2

REPORT INFORMATION
  Report Type: 
  Country: None (occurrence: None)
  Receive Date: 20110425
  Receipt Date: 20110421
  Transmission Date: 20111010
  Serious: Yes (Life-Threatening, Hospitalization)
  Sender: FDA-Public Use
  Company Number: UG-ABBOTT-11P-165-0720753-00

PATIENT
  Age: 33 Year
  Sex: Female

DRUGS (3)
  1. TENOFOVIR/LAMIVUDINE [Concomitant]
     Indication: PRODUCT USED FOR UNKNOWN INDICATION
     Dates: start: 20110217
  2. SEPTRA [Concomitant]
     Indication: PRODUCT USED FOR UNKNOWN INDICATION
     Dates: start: 20081010
  3. ALUVIA TABLETS [Suspect]
     Indication: HIV INFECTION
     Route: 048
     Dates: start: 20110217

REACTIONS (18)
  - DIARRHOEA [None]
  - ABDOMINAL PAIN [None]
  - LOSS OF CONSCIOUSNESS [None]
  - CONFUSIONAL STATE [None]
  - ANAEMIA [None]
  - PALPITATIONS [None]
  - CHEST PAIN [None]
  - VOMITING [None]
  - DYSURIA [None]
  - THROMBOTIC THROMBOCYTOPENIC PURPURA [None]
  - TACHYCARDIA [None]
  - ABDOMINAL TENDERNESS [None]
  - PYREXIA [None]
  - DEHYDRATION [None]
  - DECREASED APPETITE [None]
  - ASTHENIA [None]
  - DIZZINESS [None]
  - PALLOR [None]
